FAERS Safety Report 4633950-1 (Version None)
Quarter: 2005Q2

REPORT INFORMATION
  Report Type: 
  Country: None (occurrence: None)
  Receive Date: 20050407
  Receipt Date: 20050323
  Transmission Date: 20051028
  Serious: Yes (Other)
  Sender: FDA-Public Use
  Company Number: 2005-DE-01208GD

PATIENT
  Age: 1 Month

DRUGS (4)
  1. NEVIRAPINE [Suspect]
     Indication: HUMAN IMMUNODEFICIENCY VIRUS TRANSMISSION
     Dosage: SINGLE DOSE
  2. NEVIRAPINE [Suspect]
     Indication: PROPHYLAXIS
     Dosage: SINGLE DOSE
  3. ZIDOVUDINE [Suspect]
     Indication: HUMAN IMMUNODEFICIENCY VIRUS TRANSMISSION
  4. ZIDOVUDINE [Suspect]
     Indication: PROPHYLAXIS

REACTIONS (3)
  - DRUG EXPOSURE DURING PREGNANCY [None]
  - HIV INFECTION [None]
  - NEONATAL INFECTION [None]
